FAERS Safety Report 25506776 (Version 3)
Quarter: 2025Q4

REPORT INFORMATION
  Report Type: Spontaneous
  Country: US (occurrence: US)
  Receive Date: 20250702
  Receipt Date: 20251212
  Transmission Date: 20260117
  Serious: Yes (Other)
  Sender: RADIUS PHARM
  Company Number: US-RADIUS HEALTH INC.-2024US009107

PATIENT
  Age: 65 Year
  Sex: Female

DRUGS (5)
  1. TYMLOS [Suspect]
     Active Substance: ABALOPARATIDE
     Indication: Osteoporosis
     Dosage: UNK MICROGRAM
     Route: 065
     Dates: start: 202410
  2. TYMLOS [Suspect]
     Active Substance: ABALOPARATIDE
     Dosage: 2 CLICKS
     Route: 065
  3. TYMLOS [Suspect]
     Active Substance: ABALOPARATIDE
     Dosage: HALF A DOSES
     Route: 065
  4. CALCIUM [Concomitant]
     Active Substance: CALCIUM
     Indication: Product used for unknown indication
  5. MAGNESIUM [Concomitant]
     Active Substance: MAGNESIUM
     Indication: Product used for unknown indication
     Dosage: UNK

REACTIONS (29)
  - Neuropathy peripheral [Unknown]
  - Internal haemorrhage [Unknown]
  - Renal disorder [Unknown]
  - Condition aggravated [Unknown]
  - Fall [Unknown]
  - Weight increased [Unknown]
  - Cognitive disorder [Unknown]
  - Amnesia [Unknown]
  - Respiratory disorder [Unknown]
  - Cardiac disorder [Unknown]
  - Memory impairment [Unknown]
  - Brain fog [Unknown]
  - Sinus headache [Not Recovered/Not Resolved]
  - Respiratory tract irritation [Recovered/Resolved]
  - Somnolence [Unknown]
  - Oxygen saturation decreased [Unknown]
  - Depression [Not Recovered/Not Resolved]
  - Blood cholesterol increased [Unknown]
  - Nervous system disorder [Unknown]
  - Concussion [Unknown]
  - Anxiety [Unknown]
  - Anger [Unknown]
  - Heart rate increased [Unknown]
  - Headache [Recovering/Resolving]
  - Dizziness [Recovered/Resolved]
  - Bone pain [Unknown]
  - Insomnia [Not Recovered/Not Resolved]
  - Palpitations [Not Recovered/Not Resolved]
  - Underdose [Unknown]

NARRATIVE: CASE EVENT DATE: 20240101
